FAERS Safety Report 6795032-2 (Version None)
Quarter: 2010Q2

REPORT INFORMATION
  Report Type: 
  Country: None (occurrence: None)
  Receive Date: 20100625
  Receipt Date: 20100614
  Transmission Date: 20101027
  Serious: Yes (Hospitalization)
  Sender: FDA-Public Use
  Company Number: PHHY2010US38674

PATIENT
  Sex: Female

DRUGS (9)
  1. EXJADE [Suspect]
     Indication: SICKLE CELL ANAEMIA
     Dosage: 1000 MG, QD
     Route: 048
  2. EXJADE [Suspect]
     Indication: IRON OVERLOAD
     Dosage: 1500 MG/DAY
     Route: 048
  3. K-DUR [Concomitant]
     Dosage: 20 MEQ, QD
  4. K-DUR [Concomitant]
     Dosage: 20 MEQ, BID
  5. FOLIC ACID [Concomitant]
     Dosage: 1 MG/DAY
  6. OXYCONTIN [Concomitant]
     Dosage: 80 MG, QID
  7. HYDREA [Concomitant]
     Dosage: 500 MG DAILY
  8. VICODIN ES [Concomitant]
     Dosage: 75 MG/750 PRN
  9. VICODIN ES [Concomitant]
     Dosage: 7.5/ 500 ONE TAB Q.6 H PRN

REACTIONS (17)
  - ACUTE CHEST SYNDROME [None]
  - ANAEMIA [None]
  - BACK PAIN [None]
  - BLOOD LACTATE DEHYDROGENASE INCREASED [None]
  - BLOOD POTASSIUM DECREASED [None]
  - BLOOD PRESSURE DIASTOLIC DECREASED [None]
  - BLOOD PRESSURE SYSTOLIC INCREASED [None]
  - CARDIAC MURMUR [None]
  - CHEST PAIN [None]
  - EXTRASYSTOLES [None]
  - HEART RATE INCREASED [None]
  - LEUKOCYTOSIS [None]
  - MYOCARDIAL INFARCTION [None]
  - PAIN IN EXTREMITY [None]
  - RALES [None]
  - SICKLE CELL ANAEMIA WITH CRISIS [None]
  - TROPONIN INCREASED [None]
